FAERS Safety Report 6756310-6 (Version None)
Quarter: 2010Q2

REPORT INFORMATION
  Report Type: 
  Country: None (occurrence: None)
  Receive Date: 20100604
  Receipt Date: 20100525
  Transmission Date: 20101027
  Serious: Yes (Hospitalization, Other)
  Sender: FDA-Public Use
  Company Number: US-ROCHE-703954

PATIENT
  Sex: Male
  Weight: 81 kg

DRUGS (9)
  1. AVASTIN [Suspect]
     Indication: NON-SMALL CELL LUNG CANCER
     Dosage: FREQUENCY: EVERY 3 WEEKS X 3 CYCLES
     Route: 042
     Dates: start: 20100223
  2. AVASTIN [Suspect]
     Route: 042
     Dates: start: 20100316
  3. AVASTIN [Suspect]
     Route: 042
     Dates: start: 20100406, end: 20100406
  4. CARBOPLATIN [Suspect]
     Indication: DRUG USE FOR UNKNOWN INDICATION
     Dosage: FREQUENCY: EVERY 3 WEEKS X 3 CYCLES
     Route: 065
     Dates: start: 20100223
  5. CARBOPLATIN [Suspect]
     Route: 065
     Dates: start: 20100316
  6. CARBOPLATIN [Suspect]
     Route: 065
     Dates: start: 20100406
  7. ALIMTA [Suspect]
     Indication: DRUG USE FOR UNKNOWN INDICATION
     Dosage: FREQUENCY: EVERY 3 WEEKS X 3 CYCLES
     Route: 065
     Dates: start: 20100223
  8. ALIMTA [Suspect]
     Route: 065
     Dates: start: 20100316
  9. ALIMTA [Suspect]
     Route: 065
     Dates: start: 20100406

REACTIONS (2)
  - GALLBLADDER DISORDER [None]
  - INTESTINAL PERFORATION [None]
